FAERS Safety Report 7944517-1 (Version None)
Quarter: 2011Q4

REPORT INFORMATION
  Report Type: 
  Country: None (occurrence: None)
  Receive Date: 20111114
  Receipt Date: 20110902
  Transmission Date: 20120403
  Serious: No
  Sender: FDA-Public Use
  Company Number: 1000023525

PATIENT
  Sex: Female

DRUGS (1)
  1. SAVELLA [Suspect]

REACTIONS (5)
  - NASAL DRYNESS [None]
  - DRY EYE [None]
  - PAIN [None]
  - FLUSHING [None]
  - ERYTHEMA [None]
